FAERS Safety Report 16663935 (Version 1)
Quarter: 2019Q3

REPORT INFORMATION
  Report Type: Spontaneous
  Country: DE (occurrence: DE)
  Receive Date: 20190802
  Receipt Date: 20190802
  Transmission Date: 20191004
  Serious: Yes (Other)
  Sender: FDA-Public Use
  Company Number: DE-GLAXOSMITHKLINE-DE2019EME136259

PATIENT

DRUGS (1)
  1. ELONTRIL [Suspect]
     Active Substance: BUPROPION HYDROCHLORIDE
     Indication: PRODUCT USED FOR UNKNOWN INDICATION
     Dosage: 300 MG, UNK
     Route: 048

REACTIONS (5)
  - Loss of consciousness [Unknown]
  - Confusional state [Unknown]
  - Disturbance in attention [Unknown]
  - Hyperhidrosis [Unknown]
  - Fatigue [Unknown]
